FAERS Safety Report 9539943 (Version 1)
Quarter: 2013Q2

REPORT INFORMATION
  Report Type: Spontaneous
  Country: US (occurrence: None)
  Receive Date: 20130521
  Receipt Date: 20130521
  Transmission Date: 20140414
  Serious: No
  Sender: FDA-Public Use
  Company Number: 1000042783

PATIENT
  Age: 73 Year
  Sex: Female

DRUGS (8)
  1. TUDORZA PRESSAIR (ACLIDINIUM BROMIDE) (400 MICROGRAM, POWDER) [Suspect]
     Indication: CHRONIC OBSTRUCTIVE PULMONARY DISEASE
     Dosage: 800 MCG (400 MCG, 2 IN 1 D), RESPIRATORY (INHALATION)?
     Route: 055
     Dates: start: 20130215, end: 20130216
  2. SPIRIVA (TIOTROPIUM BROMIDE) (TIOTROPIUM BROMIDE) [Concomitant]
  3. ADVAIR (SERETIDE) (SERETIDE) [Concomitant]
  4. NORVASC (AMLODIPINE BESILATE) AMLODIPINE BESILATE) [Concomitant]
  5. HYZAAR (HYZAAR) (HYZAAR) [Concomitant]
  6. NOVOLOG (INSULIN ASPART) (INSULIN ASPART) [Concomitant]
  7. LANTUS (INSULIN GLARGINE) (INSULIN GLARGINE) [Concomitant]
  8. POTASSIUM (POTASSIUM) (POTASSIUM) [Concomitant]

REACTIONS (2)
  - Cough [None]
  - Pruritus [None]
